FAERS Safety Report 6946795 (Version 3)
Quarter: 2014Q4

REPORT INFORMATION
  Report Type: Spontaneous
  Country: US (occurrence: US)
  Receive Date: 20090320
  Receipt Date: 20141229
  Transmission Date: 20150529
  Serious: Yes (Other)
  Sender: FDA-Public Use
  Company Number: US-BAYER-200913343NA

PATIENT
  Age: 55 Year
  Sex: Male

DRUGS (7)
  1. NEXAVAR [Suspect]
     Active Substance: SORAFENIB
     Indication: PULMONARY MASS
     Dosage: 400 MG, BID
     Route: 048
     Dates: start: 20140928, end: 20141028
  2. NEXAVAR [Suspect]
     Active Substance: SORAFENIB
     Indication: RENAL CELL CARCINOMA
     Dosage: UNK
  3. OXYCODONE [Concomitant]
     Active Substance: OXYCODONE
     Indication: MUSCULOSKELETAL CHEST PAIN
     Dosage: USUALLY TAKES 3 TIMES A DAY
  4. SUTENT [Concomitant]
     Active Substance: SUNITINIB MALATE
     Dates: start: 200702, end: 200809
  5. ATIVAN [Concomitant]
     Active Substance: LORAZEPAM
  6. NEXAVAR [Suspect]
     Active Substance: SORAFENIB
     Indication: RENAL CELL CARCINOMA
     Dosage: 400 MG, BID
     Route: 048
     Dates: start: 20090207
  7. ATENOLOL. [Concomitant]
     Active Substance: ATENOLOL

REACTIONS (2)
  - Renal cell carcinoma [None]
  - Rash macular [Recovering/Resolving]

NARRATIVE: CASE EVENT DATE: 200902
